FAERS Safety Report 21944658 (Version 2)
Quarter: 2023Q1

REPORT INFORMATION
  Report Type: Other
  Country: CA (occurrence: None)
  Receive Date: 20230202
  Receipt Date: 20230210
  Transmission Date: 20230417
  Serious: Yes (Other)
  Sender: FDA-Public Use
  Company Number: CA-ROCHE-3274326

PATIENT
  Sex: Female

DRUGS (2)
  1. AVASTIN [Suspect]
     Active Substance: BEVACIZUMAB
     Indication: Age-related macular degeneration
     Dosage: ONGOING NO
     Route: 065
     Dates: start: 202001, end: 202210
  2. VABYSMO [Suspect]
     Active Substance: FARICIMAB-SVOA
     Indication: Age-related macular degeneration
     Dosage: 6 MG/0.05 ML SOLUTION ;ONGOING: YES
     Route: 050
     Dates: start: 20221202

REACTIONS (3)
  - Vascular rupture [Not Recovered/Not Resolved]
  - Off label use [Unknown]
  - Off label use [Unknown]
